FAERS Safety Report 25874252 (Version 1)
Quarter: 2025Q4

REPORT INFORMATION
  Report Type: Spontaneous
  Country: US (occurrence: None)
  Receive Date: 20251002
  Receipt Date: 20251002
  Transmission Date: 20260117
  Serious: No
  Sender: FDA-CTU
  Company Number: None

PATIENT
  Age: 33 Year
  Sex: Female

DRUGS (1)
  1. XOLAIR [Suspect]
     Active Substance: OMALIZUMAB
     Indication: Urticaria chronic
     Dosage: INJECT 300MG UNDER THE SKIN MONTHLY SUBCUTANEOUS
     Route: 058
     Dates: start: 20250724, end: 20250930

REACTIONS (3)
  - Headache [None]
  - Fatigue [None]
  - Unevaluable event [None]

NARRATIVE: CASE EVENT DATE: 20250901
